FAERS Safety Report 12338976 (Version 2)
Quarter: 2016Q2

REPORT INFORMATION
  Report Type: Spontaneous
  Country: US (occurrence: US)
  Receive Date: 20160505
  Receipt Date: 20160526
  Transmission Date: 20160815
  Serious: No
  Sender: FDA-Public Use
  Company Number: US-PFIZER INC-2016226664

PATIENT
  Age: 51 Year
  Sex: Female
  Weight: 101.6 kg

DRUGS (4)
  1. LYRICA [Suspect]
     Active Substance: PREGABALIN
     Indication: PAIN
     Dosage: 150 MG, 2X/DAY (150 MG CAPSULES, BY MOUTH, 2 TIMES PER DAY)
     Route: 048
  2. LYRICA [Suspect]
     Active Substance: PREGABALIN
     Indication: NEURALGIA
  3. LOPRESSOR [Concomitant]
     Active Substance: METOPROLOL TARTRATE
  4. LYRICA [Suspect]
     Active Substance: PREGABALIN
     Indication: ASTHENIA

REACTIONS (6)
  - Drug ineffective [Unknown]
  - Tremor [Unknown]
  - Drug dose omission [Not Recovered/Not Resolved]
  - Migraine [Unknown]
  - Bronchitis [Unknown]
  - Insomnia [Unknown]

NARRATIVE: CASE EVENT DATE: 20160401
